FAERS Safety Report 10773565 (Version 1)
Quarter: 2015Q1

REPORT INFORMATION
  Report Type: Other
  Country: US (occurrence: US)
  Receive Date: 20150208
  Receipt Date: 20150208
  Transmission Date: 20150721
  Serious: No
  Sender: FDA-Public Use
  Company Number: US-ACORDA-ACO_106486_2014

PATIENT

DRUGS (2)
  1. AMPYRA [Suspect]
     Active Substance: DALFAMPRIDINE
     Indication: GAIT DISTURBANCE
     Dosage: 10 MG, BID
     Route: 048
     Dates: start: 20130319
  2. COPAXONE [Concomitant]
     Active Substance: GLATIRAMER ACETATE
     Indication: GAIT DISTURBANCE
     Dosage: UNK
     Route: 065

REACTIONS (2)
  - Alopecia [Unknown]
  - Alopecia [Recovered/Resolved]

NARRATIVE: CASE EVENT DATE: 201303
